FAERS Safety Report 6253149-5 (Version None)
Quarter: 2009Q3

REPORT INFORMATION
  Report Type: 
  Country: None (occurrence: None)
  Receive Date: 20090701
  Receipt Date: 20090619
  Transmission Date: 20100115
  Serious: Yes (Hospitalization)
  Sender: FDA-Public Use
  Company Number: US-BAYER-200911917BCC

PATIENT
  Age: 50 Year
  Sex: Female

DRUGS (2)
  1. PHILLIP'S LIQUID GEL [Suspect]
     Indication: CONSTIPATION
     Dosage: CONSUMER REPORTED THAT SHE TOOK ONE CAPSULE ON 19-JUN-2009 AND THE EXPIRATION DATE WAS 0904
     Route: 048
     Dates: start: 20090619
  2. PHILLIP'S LIQUID GEL [Suspect]
     Dosage: HAVE BEEN TAKEN PHILLIP'S LIQUID GEL THE PAST YEARS
     Route: 048

REACTIONS (1)
  - FOOT OPERATION [None]
